FAERS Safety Report 5511299-2 (Version None)
Quarter: 2007Q4

REPORT INFORMATION
  Report Type: 
  Country: None (occurrence: None)
  Receive Date: 20071109
  Receipt Date: 20070820
  Transmission Date: 20080405
  Serious: No
  Sender: FDA-Public Use
  Company Number: A0668688A

PATIENT
  Age: 61 Year
  Sex: Female
  Weight: 61.4 kg

DRUGS (2)
  1. ALTABAX [Suspect]
     Indication: LACERATION
     Dosage: 1APP TWICE PER DAY
     Route: 061
     Dates: start: 20070802
  2. HORMONE REPLACEMENT THERAPY [Concomitant]

REACTIONS (1)
  - DRUG INEFFECTIVE [None]
